FAERS Safety Report 24283085 (Version 2)
Quarter: 2024Q3

REPORT INFORMATION
  Report Type: Spontaneous
  Country: BR (occurrence: None)
  Receive Date: 20240904
  Receipt Date: 20240905
  Transmission Date: 20241017
  Serious: Yes (Other)
  Sender: ASTRAZENECA
  Company Number: 2018SE77756

PATIENT
  Age: 701 Month
  Sex: Female

DRUGS (11)
  1. XIGDUO XR [Suspect]
     Active Substance: DAPAGLIFLOZIN PROPANEDIOL\METFORMIN HYDROCHLORIDE
     Indication: Metabolic disorder
     Dosage: 5/1000 MG, TWO TIMES A DAY
     Route: 048
     Dates: start: 20180504
  2. XIGDUO XR [Suspect]
     Active Substance: DAPAGLIFLOZIN PROPANEDIOL\METFORMIN HYDROCHLORIDE
     Indication: Metabolic disorder
     Dosage: 5/1000 MG, ONCE
     Route: 048
     Dates: start: 2022
  3. XIGDUO XR [Suspect]
     Active Substance: DAPAGLIFLOZIN PROPANEDIOL\METFORMIN HYDROCHLORIDE
     Indication: Metabolic disorder
     Route: 048
  4. VYTORIN [Concomitant]
     Active Substance: EZETIMIBE\SIMVASTATIN
  5. DPREV [Concomitant]
  6. VIVOSSO [Concomitant]
  7. BODY PROTEIN [Concomitant]
  8. GLYXAMBI [Concomitant]
     Active Substance: EMPAGLIFLOZIN\LINAGLIPTIN
  9. CIPROFIBRATE [Concomitant]
     Active Substance: CIPROFIBRATE
  10. GLIFAGE [Concomitant]
     Active Substance: METFORMIN HYDROCHLORIDE
  11. ATENOLOL [Concomitant]
     Active Substance: ATENOLOL

REACTIONS (15)
  - Blood glucose increased [Recovered/Resolved]
  - Visual impairment [Unknown]
  - Urinary tract infection [Not Recovered/Not Resolved]
  - Weight decreased [Not Recovered/Not Resolved]
  - Therapeutic response unexpected [Not Recovered/Not Resolved]
  - Genital injury [Unknown]
  - Dermatitis diaper [Recovered/Resolved]
  - Malaise [Recovered/Resolved]
  - Genital blister [Recovered/Resolved]
  - Genital pain [Recovered/Resolved]
  - Dizziness [Recovered/Resolved]
  - Tremor [Recovered/Resolved]
  - Illness [Recovered/Resolved]
  - Blood glucose decreased [Unknown]
  - Drug ineffective [Unknown]

NARRATIVE: CASE EVENT DATE: 20180501
